FAERS Safety Report 9196483 (Version 1)
Quarter: 2013Q1

REPORT INFORMATION
  Report Type: Spontaneous
  Country: US (occurrence: None)
  Receive Date: 20120709
  Receipt Date: 20120709
  Transmission Date: 20140127
  Serious: No
  Sender: FDA-Public Use
  Company Number: 2012HGS-003558

PATIENT
  Age: 55 Year
  Sex: Male
  Weight: 74.84 kg

DRUGS (4)
  1. BENLYSTA [Suspect]
     Indication: SYSTEMIC LUPUS ERYTHEMATOSUS
     Dates: start: 20120425
  2. OXYCODONE [Concomitant]
  3. PERCOCET [Concomitant]
  4. ZOFRAN [Concomitant]

REACTIONS (2)
  - Diarrhoea [None]
  - Nausea [None]
